FAERS Safety Report 7326501-4 (Version None)
Quarter: 2011Q1

REPORT INFORMATION
  Report Type: 
  Country: None (occurrence: None)
  Receive Date: 20110222
  Receipt Date: 20110209
  Transmission Date: 20110831
  Serious: Yes (Hospitalization)
  Sender: FDA-Public Use
  Company Number: TRP_07570_2011

PATIENT
  Age: 11 Day
  Sex: Female

DRUGS (7)
  1. VANCOMYCIN [Concomitant]
  2. ANIDULAFUNGIN [Suspect]
     Indication: PERITONEAL CANDIDIASIS
     Dosage: (1.5 MG/KG PER DAY FOR 2 WEEKS INTRAVENOUS (NOT OTHERWISE SPECIFIED))
     Route: 042
  3. ANIDULAFUNGIN [Suspect]
     Indication: FUNGAL PERITONITIS
     Dosage: (1.5 MG/KG PER DAY FOR 2 WEEKS INTRAVENOUS (NOT OTHERWISE SPECIFIED))
     Route: 042
  4. PIPERACILLIN W/TAZOBACTAM /01606301/ [Concomitant]
  5. TOBRAMYCIN [Concomitant]
  6. AMPHOTERICIN B [Suspect]
     Indication: ANTIFUNGAL TREATMENT
     Dosage: (5 MG/KG PER DAY FOR 6 WEEKS)
  7. AMPHOTERICIN B [Suspect]
     Indication: SEPSIS
     Dosage: (5 MG/KG PER DAY FOR 6 WEEKS)

REACTIONS (21)
  - ENTEROBACTER TEST POSITIVE [None]
  - MULTI-ORGAN FAILURE [None]
  - FUNGAL PERITONITIS [None]
  - BLOOD BILIRUBIN INCREASED [None]
  - LACTIC ACIDOSIS [None]
  - CONTINUOUS HAEMODIAFILTRATION [None]
  - PULMONARY HYPERTENSION [None]
  - ABDOMINAL COMPARTMENT SYNDROME [None]
  - ASPARTATE AMINOTRANSFERASE INCREASED [None]
  - ENTEROCOLITIS [None]
  - EUBACTERIUM INFECTION [None]
  - NEONATAL RESPIRATORY FAILURE [None]
  - HEPATIC FUNCTION ABNORMAL [None]
  - CANDIDA TEST POSITIVE [None]
  - ILEAL PERFORATION [None]
  - ALANINE AMINOTRANSFERASE INCREASED [None]
  - SEPTIC SHOCK [None]
  - NEONATAL RESPIRATORY DISTRESS SYNDROME [None]
  - INTESTINAL ISCHAEMIA [None]
  - RENAL IMPAIRMENT [None]
  - DIARRHOEA [None]
